FAERS Safety Report 7559422-2 (Version None)
Quarter: 2011Q2

REPORT INFORMATION
  Report Type: 
  Country: None (occurrence: None)
  Receive Date: 20110621
  Receipt Date: 20110613
  Transmission Date: 20111010
  Serious: Yes (Other)
  Sender: FDA-Public Use
  Company Number: DE-BRISTOL-MYERS SQUIBB COMPANY-15845142

PATIENT
  Age: 68 Year

DRUGS (1)
  1. HYDROXYUREA [Suspect]
     Indication: POLYCYTHAEMIA VERA
     Dates: start: 20060501

REACTIONS (5)
  - SKIN ULCER [None]
  - PSEUDOMONAS INFECTION [None]
  - STREPTOCOCCAL INFECTION [None]
  - ESCHERICHIA INFECTION [None]
  - STAPHYLOCOCCAL INFECTION [None]
